FAERS Safety Report 22349085 (Version 1)
Quarter: 2023Q2

REPORT INFORMATION
  Report Type: Spontaneous
  Country: GB (occurrence: GB)
  Receive Date: 20230522
  Receipt Date: 20230522
  Transmission Date: 20230722
  Serious: Yes (Other)
  Sender: FDA-Public Use
  Company Number: GB-MHRA-MED-202305111322206880-PQSLT

PATIENT
  Age: 37 Year
  Sex: Female
  Weight: 63 kg

DRUGS (2)
  1. SERTRALINE [Suspect]
     Active Substance: SERTRALINE HYDROCHLORIDE
     Indication: Anxiety
     Dosage: 100 MILLIGRAM, EVERY MORNING
     Route: 065
  2. AMITRIPTYLINE [Concomitant]
     Active Substance: AMITRIPTYLINE
     Indication: Migraine
     Dosage: UNK
     Route: 065

REACTIONS (8)
  - Fatigue [Recovering/Resolving]
  - Abnormal dreams [Recovering/Resolving]
  - Dry mouth [Recovering/Resolving]
  - Mental impairment [Recovering/Resolving]
  - Thinking abnormal [Recovering/Resolving]
  - Decreased appetite [Recovered/Resolved with Sequelae]
  - Cardiac flutter [Recovered/Resolved with Sequelae]
  - Dissociation [Recovered/Resolved]
